FAERS Safety Report 7146505-4 (Version None)
Quarter: 2010Q4

REPORT INFORMATION
  Report Type: 
  Country: None (occurrence: None)
  Receive Date: 20101208
  Receipt Date: 20101130
  Transmission Date: 20110411
  Serious: Yes (Other)
  Sender: FDA-Public Use
  Company Number: FR-PFIZER INC-2010160360

PATIENT
  Age: 35 Year
  Sex: Male

DRUGS (3)
  1. LYRICA [Suspect]
     Indication: NEURALGIA
     Dosage: UNK
     Route: 048
     Dates: start: 20100101
  2. IXPRIM [Concomitant]
     Indication: NEURALGIA
     Dosage: UNK
  3. DOLIPRANE [Concomitant]
     Indication: NEURALGIA
     Dosage: UNK

REACTIONS (3)
  - ABDOMINAL PAIN [None]
  - HEPATIC STEATOSIS [None]
  - WEIGHT INCREASED [None]
